FAERS Safety Report 17729591 (Version 1)
Quarter: 2020Q2

REPORT INFORMATION
  Report Type: Report from Study
  Country: IT (occurrence: IT)
  Receive Date: 20200430
  Receipt Date: 20200430
  Transmission Date: 20200714
  Serious: Yes (Other)
  Sender: FDA-Public Use
  Company Number: IT-PFIZER INC-2020169482

PATIENT
  Age: 72 Year
  Sex: Female

DRUGS (1)
  1. TAVOR (LORAZEPAM) [Suspect]
     Active Substance: LORAZEPAM
     Dosage: 40 DF, SINGLE
     Route: 048
     Dates: start: 20200404, end: 20200404

REACTIONS (4)
  - Drug abuse [Unknown]
  - Intentional overdose [Recovering/Resolving]
  - Suicide attempt [Unknown]
  - Sopor [Recovering/Resolving]

NARRATIVE: CASE EVENT DATE: 20200404
